FAERS Safety Report 10648775 (Version 1)
Quarter: 2014Q4

REPORT INFORMATION
  Report Type: Spontaneous
  Country: US (occurrence: None)
  Receive Date: 20141205
  Receipt Date: 20141205
  Transmission Date: 20150529
  Serious: No
  Sender: FDA-Public Use
  Company Number: USA-2014095134

PATIENT
  Age: 63 Year
  Sex: Female

DRUGS (7)
  1. DEXAMETHASONE(DEXAMETHASONE) (UNKNOWN) [Concomitant]
  2. ALLOPURINOL(ALLOPURINOL) (UNKNOWN) [Concomitant]
  3. ZOMETA [Concomitant]
     Active Substance: ZOLEDRONIC ACID
  4. POMALIDOMIDE [Suspect]
     Active Substance: POMALIDOMIDE
     Indication: PLASMA CELL MYELOMA
     Dosage: 14 IN 21D
     Route: 048
     Dates: start: 20140906
  5. ARANESP(DARBEPOETIN ALFA) (UNKNOWN) [Concomitant]
  6. VELCADE(BORTEZOMIB) (UNKNOWN) [Concomitant]
  7. ACYCLOVIR(ACICLOVIR) (UNKNOWN) [Concomitant]

REACTIONS (6)
  - Chest discomfort [None]
  - Peripheral swelling [None]
  - Rash pruritic [None]
  - Abdominal distension [None]
  - Hypoaesthesia [None]
  - Spinal pain [None]

NARRATIVE: CASE EVENT DATE: 2014
